FAERS Safety Report 9803103 (Version 2)
Quarter: 2014Q1

REPORT INFORMATION
  Report Type: Report from Study
  Country: US (occurrence: US)
  Receive Date: 20140108
  Receipt Date: 20140108
  Transmission Date: 20141002
  Serious: Yes (Death, Other)
  Sender: FDA-Public Use
  Company Number: US-ROCHE-769771

PATIENT
  Age: 19 Year
  Sex: 0

DRUGS (1)
  1. VISMODEGIB [Suspect]
     Indication: MEDULLOBLASTOMA
     Dosage: 300MG DAILY ON DAY 1 AND ON DAYS 4-28.
     Route: 048
     Dates: start: 20101216, end: 20110106

REACTIONS (6)
  - Disease progression [Fatal]
  - Platelet count decreased [Fatal]
  - Headache [Fatal]
  - Vomiting [Fatal]
  - Nausea [Fatal]
  - Bone pain [Fatal]
